FAERS Safety Report 10647532 (Version 2)
Quarter: 2014Q4

REPORT INFORMATION
  Report Type: Spontaneous
  Country: US (occurrence: US)
  Receive Date: 20141211
  Receipt Date: 20141219
  Transmission Date: 20150529
  Serious: Yes (Other)
  Sender: FDA-Public Use
  Company Number: US-TEVA-528159USA

PATIENT
  Sex: Female

DRUGS (1)
  1. PARAGARD T380A [Suspect]
     Active Substance: COPPER
     Indication: CONTRACEPTION
     Route: 015

REACTIONS (7)
  - Nervousness [Unknown]
  - Menorrhagia [Not Recovered/Not Resolved]
  - Emotional disorder [Unknown]
  - Medical device complication [Not Recovered/Not Resolved]
  - Agitation [Unknown]
  - Embedded device [Not Recovered/Not Resolved]
  - Device dislocation [Not Recovered/Not Resolved]
